FAERS Safety Report 10176939 (Version 1)
Quarter: 2014Q2

REPORT INFORMATION
  Report Type: Spontaneous
  Country: FR (occurrence: FR)
  Receive Date: 20140516
  Receipt Date: 20140516
  Transmission Date: 20141212
  Serious: Yes (Other)
  Sender: FDA-Public Use
  Company Number: FR-UCBSA-120493

PATIENT
  Age: 46 Year
  Sex: Female

DRUGS (5)
  1. KEPPRA [Suspect]
     Indication: EPILEPSY
     Dosage: DAILY DOSE
     Route: 048
     Dates: start: 2012
  2. XYLOCAINE [Interacting]
     Indication: LOCAL ANAESTHESIA
     Dosage: TWO SINGLE ADMINISTRATIONS
     Route: 048
     Dates: start: 2014, end: 2014
  3. ASPEGIC [Concomitant]
     Route: 048
  4. TEMESTA [Concomitant]
     Indication: ANXIETY
     Dosage: FREQUENCY-SOMETIMES
     Route: 048
  5. XANAX [Concomitant]
     Indication: ANXIETY
     Dosage: FREQUENCY-SOMETIMES
     Route: 048

REACTIONS (3)
  - Loss of consciousness [Recovered/Resolved]
  - Malaise [Recovered/Resolved]
  - Drug interaction [Unknown]
